FAERS Safety Report 12935764 (Version 2)
Quarter: 2016Q4

REPORT INFORMATION
  Report Type: Report from Study
  Country: None (occurrence: CA)
  Receive Date: 20161114
  Receipt Date: 20161215
  Transmission Date: 20170207
  Serious: Yes (Other)
  Sender: FDA-Public Use
  Company Number: CA-ABBVIE-16K-028-1775770-00

PATIENT
  Sex: Male

DRUGS (1)
  1. HUMIRA [Suspect]
     Active Substance: ADALIMUMAB
     Indication: CROHN^S DISEASE
     Route: 058
     Dates: start: 20160901, end: 20161021

REACTIONS (3)
  - Testis cancer [Unknown]
  - Genital lesion [Recovering/Resolving]
  - Testicular mass [Recovering/Resolving]

NARRATIVE: CASE EVENT DATE: 2016
